FAERS Safety Report 9138760 (Version 1)
Quarter: 2013Q1

REPORT INFORMATION
  Report Type: Report from Study
  Country: JP (occurrence: JP)
  Receive Date: 20130305
  Receipt Date: 20130305
  Transmission Date: 20140127
  Serious: Yes (Death)
  Sender: FDA-Public Use
  Company Number: JP-ELI_LILLY_AND_COMPANY-JP201302010491

PATIENT
  Age: 43 Year
  Sex: Male

DRUGS (4)
  1. GEMCITABINE HYDROCHLORIDE [Suspect]
     Indication: PANCREATIC CARCINOMA STAGE IV
     Dosage: 1000 MG, UNK
     Route: 042
     Dates: start: 20120530, end: 20120816
  2. OTHER PHARMA COMPANY INV DRUG [Suspect]
     Indication: PANCREATIC CARCINOMA STAGE IV
     Dosage: 2 MG, QD
     Route: 048
     Dates: start: 20120530, end: 20120611
  3. OTHER PHARMA COMPANY INV DRUG [Suspect]
     Dosage: 2 MG, QD
     Route: 048
     Dates: start: 20120618, end: 20120626
  4. OTHER PHARMA COMPANY INV DRUG [Suspect]
     Dosage: 1.5 MG, UNK
     Route: 048
     Dates: start: 20120705, end: 20120822

REACTIONS (1)
  - Interstitial lung disease [Fatal]
